FAERS Safety Report 16922275 (Version 3)
Quarter: 2019Q4

REPORT INFORMATION
  Report Type: Spontaneous
  Country: FR (occurrence: FR)
  Receive Date: 20191015
  Receipt Date: 20191108
  Transmission Date: 20200122
  Serious: Yes (Hospitalization)
  Sender: FDA-Public Use
  Company Number: FR-BEH-2019107758

PATIENT
  Age: 64 Year
  Sex: Male
  Weight: 66 kg

DRUGS (4)
  1. PRIVIGEN [Suspect]
     Active Substance: HUMAN IMMUNOGLOBULIN G
     Indication: AUTOIMMUNE NEUROPATHY
     Dosage: 115 GRAM (CYCLICAL)
     Route: 042
     Dates: start: 20140307, end: 20140414
  2. PRIVIGEN [Suspect]
     Active Substance: HUMAN IMMUNOGLOBULIN G
     Dosage: UNK
     Route: 042
  3. PRIVIGEN [Suspect]
     Active Substance: HUMAN IMMUNOGLOBULIN G
     Dosage: UNK
     Route: 042
  4. MYSOLINE [Suspect]
     Active Substance: PRIMIDONE
     Indication: TREMOR
     Route: 048
     Dates: start: 201402, end: 201404

REACTIONS (1)
  - Rash morbilliform [Recovered/Resolved]

NARRATIVE: CASE EVENT DATE: 201404
